FAERS Safety Report 7152467-6 (Version None)
Quarter: 2010Q4

REPORT INFORMATION
  Report Type: 
  Country: None (occurrence: None)
  Receive Date: 20101208
  Receipt Date: 20101208
  Transmission Date: 20110411
  Serious: Yes (Other)
  Sender: FDA-Public Use
  Company Number: None

PATIENT
  Sex: Female
  Weight: 54.4316 kg

DRUGS (2)
  1. SAVELLA [Suspect]
     Indication: FIBROMYALGIA
     Dosage: 1 TABLET 1/THEN2X A DAY PO
     Route: 048
     Dates: start: 20101109, end: 20101129
  2. SAVELLA [Suspect]
     Indication: FIBROMYALGIA
     Dosage: 1 TABLET TWICE A DAY PO
     Route: 048
     Dates: start: 20101129, end: 20101203

REACTIONS (3)
  - IRRITABILITY [None]
  - PERSONALITY CHANGE [None]
  - SUICIDAL IDEATION [None]
